FAERS Safety Report 18148763 (Version 2)
Quarter: 2020Q3

REPORT INFORMATION
  Report Type: Spontaneous
  Country: JP (occurrence: JP)
  Receive Date: 20200814
  Receipt Date: 20200821
  Transmission Date: 20201103
  Serious: No
  Sender: FDA-Public Use
  Company Number: JP-UNITED THERAPEUTICS-UNT-2017-016752

PATIENT
  Age: 42 Year
  Sex: Male
  Weight: 73.75 kg

DRUGS (9)
  1. REMODULIN [Suspect]
     Active Substance: TREPROSTINIL
     Indication: PULMONARY ARTERIAL HYPERTENSION
     Dosage: 0.001 ?G/KG, CONTINUING
     Route: 058
     Dates: start: 20171117
  2. REMODULIN [Suspect]
     Active Substance: TREPROSTINIL
     Dosage: INFUSION RATE OF 31 MCL/HR
     Route: 058
     Dates: start: 20171122
  3. REMODULIN [Suspect]
     Active Substance: TREPROSTINIL
     Dosage: 0.169 ?G/KG, CONTINUING
     Route: 058
     Dates: start: 201807
  4. OPSUMIT [Concomitant]
     Active Substance: MACITENTAN
     Indication: PULMONARY ARTERIAL HYPERTENSION
     Dosage: UNK
     Route: 048
     Dates: start: 201708
  5. ADCIRCA [Concomitant]
     Active Substance: TADALAFIL
     Indication: PULMONARY ARTERIAL HYPERTENSION
     Dosage: UNK
     Route: 048
     Dates: start: 201509
  6. ALLOPURINOL. [Concomitant]
     Active Substance: ALLOPURINOL
     Indication: PRODUCT USED FOR UNKNOWN INDICATION
     Dosage: UNK
     Route: 048
  7. REMODULIN [Suspect]
     Active Substance: TREPROSTINIL
     Dosage: 0.005 ?G/KG, CONTINUING
     Route: 058
     Dates: start: 201711
  8. LOXOPROFEN [Concomitant]
     Active Substance: LOXOPROFEN
     Indication: PROPHYLAXIS
     Dosage: 60 MG, Q8H
     Route: 048
     Dates: start: 20171116
  9. REMODULIN [Suspect]
     Active Substance: TREPROSTINIL
     Dosage: 0.160 ?G/KG, CONTINUING
     Route: 058

REACTIONS (11)
  - Infusion site pain [Recovered/Resolved]
  - Infusion site hypersensitivity [Recovering/Resolving]
  - Catheter site extravasation [Not Recovered/Not Resolved]
  - Nausea [Unknown]
  - Infusion site haemorrhage [Unknown]
  - Infusion site erythema [Not Recovered/Not Resolved]
  - Infusion site induration [Not Recovered/Not Resolved]
  - Infusion site infection [Unknown]
  - Infusion site pruritus [Recovered/Resolved]
  - Headache [Unknown]
  - Infusion site rash [Recovered/Resolved]

NARRATIVE: CASE EVENT DATE: 201711
